FAERS Safety Report 6786313-7 (Version None)
Quarter: 2010Q2

REPORT INFORMATION
  Report Type: 
  Country: None (occurrence: None)
  Receive Date: 20100623
  Receipt Date: 20100615
  Transmission Date: 20101027
  Serious: Yes (Death)
  Sender: FDA-Public Use
  Company Number: GXKR2010PT06592

PATIENT
  Age: 57 Year
  Sex: Female

DRUGS (8)
  1. DIAZEPAM [Suspect]
     Indication: DEPRESSION
     Route: 065
  2. ESTAZOLAM [Suspect]
     Indication: DEPRESSION
     Route: 065
  3. TIANEPTINE [Suspect]
     Indication: DEPRESSION
     Route: 065
  4. TRASTUZUMAB [Suspect]
     Indication: CHEMOTHERAPY
     Dosage: UNK
     Dates: start: 20081001, end: 20090309
  5. TRASTUZUMAB [Suspect]
     Indication: BREAST CANCER
  6. TAMOXIFEN [Concomitant]
     Indication: CHEMOTHERAPY
     Dosage: UNK
     Dates: start: 20080901
  7. ATENOLOL [Concomitant]
     Indication: SUPRAVENTRICULAR EXTRASYSTOLES
     Dosage: UNK
     Dates: end: 20090301
  8. PERINDOPRIL [Concomitant]
     Dosage: UNK
     Dates: start: 20090301

REACTIONS (1)
  - CARDIAC DEATH [None]
